FAERS Safety Report 4506187-4 (Version None)
Quarter: 2004Q4

REPORT INFORMATION
  Report Type: 
  Country: None (occurrence: None)
  Receive Date: 20041025
  Receipt Date: 20040209
  Transmission Date: 20050328
  Serious: Yes (Other)
  Sender: FDA-Public Use
  Company Number: US-JNJFOC-20031003372

PATIENT
  Age: 65 Year
  Sex: Female
  Weight: 118.8424 kg

DRUGS (19)
  1. REMICADE [Suspect]
     Indication: RHEUMATOID ARTHRITIS
     Dosage: 400 MG 1 IN 1 DAY INTRAVENOUS
     Route: 042
     Dates: start: 20010226
  2. REMICADE [Suspect]
     Indication: RHEUMATOID ARTHRITIS
     Dosage: 400 MG 1 IN 1 DAY INTRAVENOUS
     Route: 042
     Dates: start: 20010409
  3. REMICADE [Suspect]
     Indication: RHEUMATOID ARTHRITIS
     Dosage: 400 MG 1 IN 1 DAY INTRAVENOUS
     Route: 042
     Dates: start: 20011120
  4. REMICADE [Suspect]
     Indication: RHEUMATOID ARTHRITIS
     Dosage: 400 MG 1 IN 1 DAY INTRAVENOUS
     Route: 042
     Dates: start: 20020128
  5. REMICADE [Suspect]
     Indication: RHEUMATOID ARTHRITIS
     Dosage: 400 MG 1 IN 1 DAY INTRAVENOUS
     Route: 042
     Dates: start: 20020307
  6. REMICADE [Suspect]
     Indication: RHEUMATOID ARTHRITIS
     Dosage: 400 MG 1 IN 1 DAY INTRAVENOUS
     Route: 042
     Dates: start: 20020528
  7. REMICADE [Suspect]
     Indication: RHEUMATOID ARTHRITIS
     Dosage: 400 MG 1 IN 1 DAY INTRAVENOUS
     Route: 042
     Dates: start: 20020723
  8. REMICADE [Suspect]
     Indication: RHEUMATOID ARTHRITIS
     Dosage: 400 MG 1 IN 1 DAY INTRAVENOUS
     Route: 042
     Dates: start: 20030220
  9. REMICADE [Suspect]
     Indication: RHEUMATOID ARTHRITIS
     Dosage: 400 MG 1 IN 1 DAY INTRAVENOUS
     Route: 042
     Dates: start: 20030421
  10. REMICADE [Suspect]
     Indication: RHEUMATOID ARTHRITIS
     Dosage: 400 MG 1 IN 1 DAY INTRAVENOUS
     Route: 042
     Dates: start: 20030623
  11. REMICADE [Suspect]
     Indication: RHEUMATOID ARTHRITIS
     Dosage: 400 MG 1 IN 1 DAY INTRAVENOUS
     Route: 042
     Dates: start: 20030829
  12. REMICADE [Suspect]
     Indication: RHEUMATOID ARTHRITIS
     Dosage: 400 MG 1 IN 1 DAY INTRAVENOUS
     Route: 042
     Dates: start: 20031107
  13. REMICADE [Suspect]
     Indication: RHEUMATOID ARTHRITIS
     Dosage: 400 MG 1 IN 1 DAY INTRAVENOUS
     Route: 042
     Dates: start: 20040114
  14. METHOTREXATE [Concomitant]
  15. MONOPRIL [Concomitant]
  16. HYDROCHLOROTHIAZIDE [Concomitant]
  17. AMARYL [Concomitant]
  18. ACTOS [Concomitant]
  19. GLUCOPHAGE XR(METFORMIN HYDROCHLORIDE) [Concomitant]

REACTIONS (1)
  - HODGKIN'S DISEASE [None]
